FAERS Safety Report 9278795 (Version 1)
Quarter: 2013Q2

REPORT INFORMATION
  Report Type: Spontaneous
  Country: US (occurrence: US)
  Receive Date: 20130508
  Receipt Date: 20130508
  Transmission Date: 20140414
  Serious: No
  Sender: FDA-Public Use
  Company Number: US-ASTRAZENECA-2013SE29995

PATIENT
  Age: 77 Year
  Sex: Male
  Weight: 90.7 kg

DRUGS (4)
  1. TENORMIN [Suspect]
     Indication: BLOOD PRESSURE ABNORMAL
     Route: 048
  2. SYMBICORT [Suspect]
     Indication: CHRONIC OBSTRUCTIVE PULMONARY DISEASE
     Dosage: 160MCG 2 PUFFS BID
     Route: 055
     Dates: start: 20130214, end: 20130418
  3. PRILOSEC [Suspect]
     Route: 048
  4. LOVASTATIN [Concomitant]
     Indication: BLOOD CHOLESTEROL ABNORMAL
     Route: 048

REACTIONS (8)
  - Increased upper airway secretion [Recovering/Resolving]
  - Sensation of pressure [Recovering/Resolving]
  - Dry throat [Recovering/Resolving]
  - Visual acuity reduced [Recovering/Resolving]
  - Throat irritation [Recovering/Resolving]
  - Headache [Recovering/Resolving]
  - Headache [Recovering/Resolving]
  - Intentional drug misuse [Unknown]
